FAERS Safety Report 16413424 (Version 1)
Quarter: 2019Q2

REPORT INFORMATION
  Report Type: Spontaneous
  Country: NL (occurrence: NL)
  Receive Date: 20190611
  Receipt Date: 20190611
  Transmission Date: 20190711
  Serious: Yes (Hospitalization)
  Sender: FDA-Public Use
  Company Number: NL-TEVA-2019-NL-1060896

PATIENT
  Age: 72 Year
  Sex: Female

DRUGS (8)
  1. PERINDOPRIL 4MG [Concomitant]
     Active Substance: PERINDOPRIL
     Dosage: 2 MILLIGRAM DAILY; 1 DD 2 MG
  2. ARAVA 20MG [Concomitant]
     Dosage: 20 MILLIGRAM DAILY; 1 DD 1
  3. PRADAXA [Concomitant]
     Active Substance: DABIGATRAN ETEXILATE MESYLATE
     Dosage: 2DD1
  4. RISEDRONINEZUUR FILMOMHULDE TABLET, 35 MG (MILLIGRAM) (RISEDRONIC ACID) [Suspect]
     Active Substance: RISEDRONIC ACID
     Indication: OSTEOPOROSIS PROPHYLAXIS
     Dosage: 1W1T
     Dates: start: 20190403, end: 20190414
  5. OMEPRAZOL 20MG [Concomitant]
     Dosage: 2DD1
  6. COLCALCIFEROL 25000IE [Concomitant]
     Dosage: 1 DOSAGE FORMS DAILY; 1X PER MAAND 1
  7. METOPROLOL RET [Concomitant]
     Dosage: 50 MILLIGRAM DAILY; 1 DD 50 MG
  8. PREDNISOLON 5MG [Concomitant]
     Dosage: 7 MILLIGRAM DAILY; 1DD1,5T

REACTIONS (2)
  - Atrial fibrillation [Recovered/Resolved]
  - Dyspnoea [Recovered/Resolved]

NARRATIVE: CASE EVENT DATE: 20190403
